FAERS Safety Report 18217161 (Version 5)
Quarter: 2025Q2

REPORT INFORMATION
  Report Type: Spontaneous
  Country: US (occurrence: US)
  Receive Date: 20200901
  Receipt Date: 20250528
  Transmission Date: 20250717
  Serious: No
  Sender: PFIZER
  Company Number: US-PFIZER INC-2020335474

PATIENT
  Age: 72 Year
  Sex: Female

DRUGS (5)
  1. XELJANZ [Suspect]
     Active Substance: TOFACITINIB CITRATE
     Indication: Rheumatoid arthritis
     Dosage: 5 MG, 2X/DAY
     Route: 048
     Dates: start: 2015
  2. XELJANZ [Suspect]
     Active Substance: TOFACITINIB CITRATE
     Dosage: 5 MG, 2X/DAY
     Route: 048
     Dates: start: 2015
  3. XELJANZ [Suspect]
     Active Substance: TOFACITINIB CITRATE
     Dosage: 5 MG, 2X/DAY
     Route: 048
  4. METHOTREXATE [Concomitant]
     Active Substance: METHOTREXATE
     Indication: Rheumatoid arthritis
     Dates: start: 2015
  5. ENBREL [Concomitant]
     Active Substance: ETANERCEPT

REACTIONS (11)
  - Therapeutic response unexpected [Unknown]
  - Condition aggravated [Recovered/Resolved]
  - Cystitis [Unknown]
  - Malaise [Unknown]
  - Asthenia [Unknown]
  - Pain [Recovered/Resolved]
  - Tremor [Unknown]
  - Mobility decreased [Recovered/Resolved]
  - Illness [Unknown]
  - Product dose omission in error [Unknown]
  - Intentional dose omission [Unknown]

NARRATIVE: CASE EVENT DATE: 20200601
